FAERS Safety Report 10206266 (Version 3)
Quarter: 2014Q2

REPORT INFORMATION
  Report Type: Spontaneous
  Country: JP (occurrence: JP)
  Receive Date: 20140530
  Receipt Date: 20140630
  Transmission Date: 20141212
  Serious: Yes (Life-Threatening)
  Sender: FDA-Public Use
  Company Number: JP-JNJFOC-20140513627

PATIENT
  Age: 70 Year
  Sex: Male
  Weight: 63 kg

DRUGS (6)
  1. XARELTO [Suspect]
     Indication: ATRIAL FIBRILLATION
     Route: 048
     Dates: start: 20140404, end: 20140503
  2. XARELTO [Suspect]
     Indication: CEREBROVASCULAR ACCIDENT PROPHYLAXIS
     Route: 048
     Dates: start: 20140404, end: 20140503
  3. ACTOS [Concomitant]
     Route: 048
     Dates: start: 20140612
  4. MAINTATE [Concomitant]
     Route: 048
     Dates: start: 20140612
  5. NEXIUM [Concomitant]
     Route: 048
     Dates: start: 20140612
  6. NORVASC [Concomitant]
     Route: 065
     Dates: start: 20140612

REACTIONS (1)
  - Interstitial lung disease [Recovered/Resolved]
